FAERS Safety Report 9192749 (Version 1)
Quarter: 2013Q1

REPORT INFORMATION
  Report Type: Spontaneous
  Country: NL (occurrence: None)
  Receive Date: 20130325
  Receipt Date: 20130325
  Transmission Date: 20140127
  Serious: Yes (Hospitalization, Other)
  Sender: FDA-Public Use
  Company Number: 2013AP003678

PATIENT
  Age: 63 Year
  Sex: Female

DRUGS (6)
  1. PREDNISOLONE (PREDNISOLONE) [Suspect]
     Indication: TAKAYASU^S ARTERITIS
  2. AZATHIOPRINE [Suspect]
  3. PREDNISONE (PREDNISONE) [Suspect]
     Indication: TAKAYASU^S ARTERITIS
  4. METHOTREXATE (METHOTREXATE) [Suspect]
     Indication: TAKAYASU^S ARTERITIS
  5. INFLIXIMAB (INFLIXIMAB) [Suspect]
     Indication: TAKAYASU^S ARTERITIS
  6. TOCILIZUMAB [Suspect]
     Indication: TAKAYASU^S ARTERITIS

REACTIONS (4)
  - Lung abscess [None]
  - Streptococcal infection [None]
  - Gastrointestinal disorder [None]
  - Drug ineffective [None]
